FAERS Safety Report 11512418 (Version 1)
Quarter: 2015Q3

REPORT INFORMATION
  Report Type: Spontaneous
  Country: US (occurrence: US)
  Receive Date: 20150916
  Receipt Date: 20150916
  Transmission Date: 20151125
  Serious: Yes (Other)
  Sender: FDA-Public Use
  Company Number: US-SA-2015SA138107

PATIENT
  Age: 57 Year
  Sex: Male

DRUGS (1)
  1. NORPRAMIN [Suspect]
     Active Substance: DESIPRAMINE HYDROCHLORIDE
     Indication: ANXIETY
     Route: 065
     Dates: start: 1994, end: 1994

REACTIONS (4)
  - Diabetic ketoacidosis [Unknown]
  - Thirst [Unknown]
  - Diabetes mellitus [Unknown]
  - Weight decreased [Unknown]

NARRATIVE: CASE EVENT DATE: 1994
